FAERS Safety Report 16251704 (Version 1)
Quarter: 2019Q2

REPORT INFORMATION
  Report Type: Spontaneous
  Country: US (occurrence: US)
  Receive Date: 20190326
  Receipt Date: 20190326
  Transmission Date: 20190711
  Serious: No
  Sender: FDA-Public Use
  Company Number: None

PATIENT
  Age: 42 Year
  Sex: Female

DRUGS (11)
  1. PREDNISONE. [Concomitant]
     Active Substance: PREDNISONE
  2. VITAMIN D3 [Concomitant]
     Active Substance: CHOLECALCIFEROL
  3. TACROLIMUS CAPSULES 0.5MG [PFIZER] [Suspect]
     Active Substance: TACROLIMUS
     Indication: RENAL TRANSPLANT
     Dosage: ?          OTHER DOSE:3 CAPS;?
     Route: 048
  4. MYCOPHENOLATE TAB 500MG TAB [Suspect]
     Active Substance: MYCOPHENOLIC ACID
     Indication: RENAL TRANSPLANT
     Dosage: ?          OTHER DOSE:2 TABS;?
     Route: 048
     Dates: start: 20190215
  5. ATENOLOL. [Concomitant]
     Active Substance: ATENOLOL
  6. AMLODIPINE [Suspect]
     Active Substance: AMLODIPINE BESYLATE
  7. IRON [Concomitant]
     Active Substance: IRON
  8. KEPPRA [Concomitant]
     Active Substance: LEVETIRACETAM
  9. CALCIUM [Concomitant]
     Active Substance: CALCIUM
  10. TOPAMAX [Concomitant]
     Active Substance: TOPIRAMATE
  11. PEPCID [Concomitant]
     Active Substance: FAMOTIDINE

REACTIONS (1)
  - Influenza [None]

NARRATIVE: CASE EVENT DATE: 201903
